FAERS Safety Report 14841981 (Version 1)
Quarter: 2018Q2

REPORT INFORMATION
  Report Type: Spontaneous
  Country: JP (occurrence: JP)
  Receive Date: 20180503
  Receipt Date: 20180503
  Transmission Date: 20180711
  Serious: Yes (Life-Threatening, Hospitalization)
  Sender: FDA-Public Use
  Company Number: JP-TEVA-2018-JP-887454

PATIENT
  Age: 78 Year
  Sex: Male

DRUGS (11)
  1. LEVOFLOXACIN EYE DROPS [Suspect]
     Active Substance: LEVOFLOXACIN
     Indication: ANTIBIOTIC THERAPY
     Dosage: EYE DROP
     Route: 047
  2. NIFEDIPINE. [Concomitant]
     Active Substance: NIFEDIPINE
     Dosage: HAD BEEN TREATED FOR THREE YEARS
     Route: 065
  3. ATORVASTATIN [Concomitant]
     Active Substance: ATORVASTATIN
     Dosage: HAD BEEN TREATED FOR THREE YEARS
     Route: 065
  4. DICLOFENAC (DICLOFENAC) [Suspect]
     Active Substance: DICLOFENAC
     Route: 065
  5. LEVOFLOXACIN INJECTION [Suspect]
     Active Substance: LEVOFLOXACIN
     Indication: ANTIBIOTIC THERAPY
     Route: 065
  6. DOXAZOSIN [Concomitant]
     Active Substance: DOXAZOSIN\DOXAZOSIN MESYLATE
     Dosage: HAD BEEN TREATED FOR THREE YEARS
     Route: 065
  7. CANDESARTAN. [Concomitant]
     Active Substance: CANDESARTAN
     Dosage: HAD BEEN TREATED FOR THREE YEARS
     Route: 065
  8. SARPOGRELATE [Concomitant]
     Active Substance: SARPOGRELATE
     Dosage: HAD BEEN TREATED FOR THREE YEARS
     Route: 065
  9. SIVELESTAT SODIUM [Concomitant]
     Active Substance: SIVELESTAT SODIUM
     Route: 065
  10. MEROPENEM. [Suspect]
     Active Substance: MEROPENEM
     Route: 065
  11. NICARDIPINE HYDROCHLORIDE. [Concomitant]
     Active Substance: NICARDIPINE HYDROCHLORIDE
     Route: 065

REACTIONS (4)
  - Respiratory failure [Recovered/Resolved]
  - Traumatic lung injury [Recovering/Resolving]
  - Eosinophilic pneumonia [Recovering/Resolving]
  - Hypersensitivity [Recovering/Resolving]
